FAERS Safety Report 17514613 (Version 2)
Quarter: 2020Q1

REPORT INFORMATION
  Report Type: Spontaneous
  Country: DE (occurrence: DE)
  Receive Date: 20200309
  Receipt Date: 20200318
  Transmission Date: 20200409
  Serious: Yes (Other)
  Sender: FDA-Public Use
  Company Number: DE-AUROBINDO-AUR-APL-2020-011628

PATIENT
  Age: 36 Year
  Sex: Female
  Weight: 63 kg

DRUGS (2)
  1. LAMOTRIGIN [Suspect]
     Active Substance: LAMOTRIGINE
     Indication: EPILEPSY
     Dosage: 350 MILLIGRAM, DAILY (150 MG-0-200)
     Route: 048
     Dates: start: 20191010
  2. LAMOTRIGINE AUROBINDO [Suspect]
     Active Substance: LAMOTRIGINE
     Indication: EPILEPSY
     Dosage: 150 MILLIGRAM
     Route: 048
     Dates: start: 20200103

REACTIONS (1)
  - Urticarial vasculitis [Not Recovered/Not Resolved]

NARRATIVE: CASE EVENT DATE: 201910
